FAERS Safety Report 10520955 (Version 3)
Quarter: 2014Q4

REPORT INFORMATION
  Report Type: Spontaneous
  Country: IT (occurrence: IT)
  Receive Date: 20141016
  Receipt Date: 20141203
  Transmission Date: 20150528
  Serious: Yes (Death, Hospitalization)
  Sender: FDA-Public Use
  Company Number: IT-009507513-1410ITA005676

PATIENT
  Age: 58 Year
  Sex: Female
  Weight: 50 kg

DRUGS (5)
  1. VICTRELIS [Suspect]
     Active Substance: BOCEPREVIR
     Indication: CHRONIC HEPATITIS C
     Dosage: 2400 MG DAILY
     Route: 048
     Dates: start: 20140630, end: 20140926
  2. PEGINTRON [Suspect]
     Active Substance: PEGINTERFERON ALFA-2B
     Indication: CHRONIC HEPATITIS C
     Dosage: 80 MICROGRAM, QD
     Route: 058
     Dates: start: 20140630, end: 20140922
  3. INSULIN [Concomitant]
     Active Substance: INSULIN NOS
     Indication: DIABETES MELLITUS
     Dosage: UNK
     Route: 058
     Dates: start: 20130101, end: 20130920
  4. REBETOL [Suspect]
     Active Substance: RIBAVIRIN
     Indication: CHRONIC HEPATITIS C
     Dosage: 1000 MG, QD
     Route: 048
     Dates: start: 20140530, end: 20140926
  5. SELOKEN [Concomitant]
     Active Substance: METOPROLOL
     Dosage: UNK
     Route: 048
     Dates: start: 20060101, end: 20140929

REACTIONS (10)
  - Renal impairment [Not Recovered/Not Resolved]
  - Enterocolitis haemorrhagic [Not Recovered/Not Resolved]
  - Pneumonia [Not Recovered/Not Resolved]
  - Diarrhoea [Fatal]
  - Pyrexia [Fatal]
  - Chest pain [Fatal]
  - Gastritis haemorrhagic [Not Recovered/Not Resolved]
  - Abdominal pain [Fatal]
  - Cough [Fatal]
  - Vomiting [Fatal]

NARRATIVE: CASE EVENT DATE: 20140923
